FAERS Safety Report 15515287 (Version 1)
Quarter: 2018Q4

REPORT INFORMATION
  Report Type: Spontaneous
  Country: US (occurrence: US)
  Receive Date: 20181017
  Receipt Date: 20181017
  Transmission Date: 20190205
  Serious: No
  Sender: FDA-Public Use
  Company Number: US-AMGEN-USASP2018142919

PATIENT
  Sex: Male

DRUGS (1)
  1. ENBREL [Suspect]
     Active Substance: ETANERCEPT
     Indication: CYSTITIS INTERSTITIAL
     Dosage: UNK
     Route: 065
     Dates: start: 2014

REACTIONS (2)
  - Off label use [Unknown]
  - Product storage error [Unknown]
